FAERS Safety Report 17833294 (Version 3)
Quarter: 2021Q2

REPORT INFORMATION
  Report Type: Report from Study
  Country: US (occurrence: US)
  Receive Date: 20200528
  Receipt Date: 20210528
  Transmission Date: 20210717
  Serious: Yes (Other)
  Sender: FDA-Public Use
  Company Number: US-ROCHE-2606483

PATIENT
  Age: 46 Year
  Sex: Female
  Weight: 86.6 kg

DRUGS (3)
  1. PLACEBO [Suspect]
     Active Substance: UNSPECIFIED INGREDIENT
     Indication: COVID-19
     Route: 042
     Dates: start: 20200508, end: 20200508
  2. APIXABAN [Concomitant]
     Active Substance: APIXABAN
  3. LOW?MOLECULAR?WEIGHT HEPARIN CALCIUM [Concomitant]
     Active Substance: HEPARIN CALCIUM

REACTIONS (3)
  - Pneumonia viral [Unknown]
  - Pleuritic pain [Unknown]
  - Pulmonary embolism [Recovered/Resolved]

NARRATIVE: CASE EVENT DATE: 20200512
